FAERS Safety Report 19615730 (Version 2)
Quarter: 2021Q3

REPORT INFORMATION
  Report Type: Spontaneous
  Country: FR (occurrence: FR)
  Receive Date: 20210727
  Receipt Date: 20210730
  Transmission Date: 20211014
  Serious: Yes (Hospitalization)
  Sender: FDA-Public Use
  Company Number: FR-PFIZER INC-2021903660

PATIENT
  Age: 36 Year
  Sex: Male
  Weight: 84 kg

DRUGS (6)
  1. ERYTHROCINE [ERYTHROMYCIN] [Suspect]
     Active Substance: ERYTHROMYCIN
     Indication: SEPSIS
     Dosage: 250 MG EVERY 8 HOURS
     Route: 042
     Dates: start: 20210604, end: 20210610
  2. VANCOMYCINE MYLAN [VANCOMYCIN] [Suspect]
     Active Substance: VANCOMYCIN
     Indication: SEPSIS
     Dosage: 2 GRAM, QD
     Route: 041
     Dates: start: 20210610, end: 20210611
  3. LINEZOLIDE OHRE PHARMA [Suspect]
     Active Substance: LINEZOLID
     Indication: SEPSIS
     Dosage: 600 GRAM, Q12H
     Route: 041
     Dates: start: 20210611, end: 20210623
  4. ORBENINE [Suspect]
     Active Substance: CLOXACILLIN SODIUM
     Indication: SEPSIS
     Dosage: 3 GRAM, BID
     Route: 042
     Dates: start: 20210605, end: 20210608
  5. EUPANTOL [Suspect]
     Active Substance: PANTOPRAZOLE SODIUM
     Dosage: 40 MILLIGRAM, QD
     Route: 042
     Dates: start: 20210610, end: 20210621
  6. PIPERACILLIN/TAZOBACTAM [Suspect]
     Active Substance: PIPERACILLIN SODIUM\TAZOBACTAM SODIUM
     Indication: SEPSIS
     Dosage: 4 GRAM, Q6HR
     Route: 041
     Dates: start: 20210608, end: 20210617

REACTIONS (1)
  - Drug reaction with eosinophilia and systemic symptoms [Recovered/Resolved]

NARRATIVE: CASE EVENT DATE: 20210615
